FAERS Safety Report 24018975 (Version 1)
Quarter: 2024Q2

REPORT INFORMATION
  Report Type: Spontaneous
  Country: US (occurrence: US)
  Receive Date: 20240627
  Receipt Date: 20240627
  Transmission Date: 20240715
  Serious: No
  Sender: FDA-Public Use
  Company Number: US-SA-SAC20240619000119

PATIENT
  Age: 33 Year
  Sex: Female

DRUGS (2)
  1. DUPIXENT [Suspect]
     Active Substance: DUPILUMAB
     Indication: Eczema
     Dosage: 300 MG, QOW
     Route: 058
     Dates: start: 202310, end: 202401
  2. DUPIXENT [Suspect]
     Active Substance: DUPILUMAB
     Dosage: UNK
     Dates: start: 202401

REACTIONS (11)
  - Pruritus [Unknown]
  - Burning sensation [Unknown]
  - Swelling [Unknown]
  - Erythema [Unknown]
  - Condition aggravated [Unknown]
  - Skin exfoliation [Recovering/Resolving]
  - Inflammation [Recovering/Resolving]
  - Skin laxity [Recovering/Resolving]
  - Skin laceration [Recovering/Resolving]
  - Rash [Unknown]
  - Therapeutic response shortened [Unknown]

NARRATIVE: CASE EVENT DATE: 20240101
